FAERS Safety Report 19507743 (Version 1)
Quarter: 2021Q3

REPORT INFORMATION
  Report Type: Spontaneous
  Country: US (occurrence: US)
  Receive Date: 20210708
  Receipt Date: 20210708
  Transmission Date: 20211014
  Serious: Yes (Life-Threatening, Hospitalization, Other)
  Sender: FDA-Public Use
  Company Number: US-BAYER-2021-169117

PATIENT
  Age: 31 Year
  Sex: Male

DRUGS (1)
  1. PARACETAMOL [Suspect]
     Active Substance: ACETAMINOPHEN
     Dosage: 125 G
     Route: 048

REACTIONS (7)
  - Toxicity to various agents [Recovering/Resolving]
  - Acute hepatic failure [Recovered/Resolved]
  - Hepatic necrosis [Recovered/Resolved]
  - Overdose [Recovering/Resolving]
  - Analgesic drug level increased [Recovered/Resolved]
  - Intracranial pressure increased [Recovered/Resolved]
  - Encephalopathy [Recovering/Resolving]
